FAERS Safety Report 25888170 (Version 1)
Quarter: 2025Q4

REPORT INFORMATION
  Report Type: Spontaneous
  Country: US (occurrence: US)
  Receive Date: 20251007
  Receipt Date: 20251007
  Transmission Date: 20260117
  Serious: Yes (Other)
  Sender: SHILPA MEDICARE
  Company Number: US-KOANAAP-SML-US-2025-00494

PATIENT
  Age: 66 Year
  Sex: Female

DRUGS (2)
  1. GEMCITABINE [Suspect]
     Active Substance: GEMCITABINE
     Indication: Cutaneous T-cell lymphoma stage II
     Dosage: STARTED ON GEMCITABINE THERAPY 1 WEEK BEFORE PRESENTATION.
  2. ROMIDEPSIN [Suspect]
     Active Substance: ROMIDEPSIN
     Indication: Cutaneous T-cell lymphoma stage II
     Dosage: COMPLETED 4 TREATMENT CYCLES OF ROMIDEPSIN 1 MONTH BEFORE PRESENTATION

REACTIONS (2)
  - Dermatitis bullous [Unknown]
  - Disease progression [Unknown]
